FAERS Safety Report 9431646 (Version 1)
Quarter: 2013Q3

REPORT INFORMATION
  Report Type: Spontaneous
  Country: US (occurrence: US)
  Receive Date: 20130731
  Receipt Date: 20130731
  Transmission Date: 20140515
  Serious: Yes (Hospitalization)
  Sender: FDA-Public Use
  Company Number: US-BIOGENIDEC-2013BI070297

PATIENT
  Age: 50 Year
  Sex: Female

DRUGS (3)
  1. AVONEX [Suspect]
     Indication: MULTIPLE SCLEROSIS
     Route: 030
     Dates: start: 200701, end: 200705
  2. AVONEX [Suspect]
     Indication: MULTIPLE SCLEROSIS
     Route: 030
     Dates: start: 201003, end: 201306
  3. AVONEX [Suspect]
     Indication: MULTIPLE SCLEROSIS
     Route: 030
     Dates: start: 201306

REACTIONS (6)
  - Furuncle [Recovered/Resolved]
  - Cellulitis [Recovered/Resolved]
  - Drug resistance [Unknown]
  - Immune system disorder [Not Recovered/Not Resolved]
  - Injection site pain [Recovered/Resolved]
  - Multiple sclerosis relapse [Recovered/Resolved]
